FAERS Safety Report 6954196-8 (Version None)
Quarter: 2010Q3

REPORT INFORMATION
  Report Type: 
  Country: None (occurrence: None)
  Receive Date: 20100829
  Receipt Date: 20100707
  Transmission Date: 20110219
  Serious: No
  Sender: FDA-Public Use
  Company Number: US-ABBOTT-10P-163-0656623-00

PATIENT
  Sex: Female

DRUGS (2)
  1. NIASPAN [Suspect]
     Indication: LOW DENSITY LIPOPROTEIN INCREASED
     Dates: start: 20100401
  2. NIASPAN [Suspect]
     Dates: start: 20100301, end: 20100401

REACTIONS (3)
  - GENERALISED ERYTHEMA [None]
  - JOINT SWELLING [None]
  - SKIN BURNING SENSATION [None]
